FAERS Safety Report 6015081-1 (Version None)
Quarter: 2008Q4

REPORT INFORMATION
  Report Type: 
  Country: None (occurrence: None)
  Receive Date: 20081218
  Receipt Date: 20081202
  Transmission Date: 20090506
  Serious: Yes (Death, Hospitalization)
  Sender: FDA-Public Use
  Company Number: KV200800905

PATIENT
  Age: 90 Year
  Sex: Female
  Weight: 59 kg

DRUGS (7)
  1. ISOSORBIDE MONONITRATE [Suspect]
     Indication: CARDIAC DISORDER
     Dosage: 30 MG, QD, ORAL
     Route: 048
     Dates: end: 20081106
  2. RANEXA (RANOLAZINE) [Concomitant]
  3. COREG [Concomitant]
  4. PACERONE [Concomitant]
  5. GABAPENTIN [Concomitant]
  6. COUMADIN [Concomitant]
  7. AZOR (ALPRAZOLAM) [Concomitant]

REACTIONS (6)
  - BLOOD PRESSURE INADEQUATELY CONTROLLED [None]
  - CARDIAC ENZYMES INCREASED [None]
  - COLD SWEAT [None]
  - DYSARTHRIA [None]
  - PNEUMONIA [None]
  - PRODUCT QUALITY ISSUE [None]
